FAERS Safety Report 16105485 (Version 1)
Quarter: 2019Q1

REPORT INFORMATION
  Report Type: Spontaneous
  Country: US (occurrence: US)
  Receive Date: 20190322
  Receipt Date: 20190322
  Transmission Date: 20190418
  Serious: No
  Sender: FDA-Public Use
  Company Number: PHEH2019US011898

PATIENT
  Age: 70 Year
  Sex: Female

DRUGS (2)
  1. CHOLESTYRAMINE FOR ORAL SUSPENSION USP [Suspect]
     Active Substance: CHOLESTYRAMINE
     Indication: GALLBLADDER DISORDER
     Dosage: 1 UNK, QD (1 PACKET DAILY)
     Route: 065
  2. CHOLESTYRAMINE FOR ORAL SUSPENSION USP [Suspect]
     Active Substance: CHOLESTYRAMINE
     Dosage: 1 UNK, QD (1/2 PACKET DAILY)
     Route: 065
     Dates: start: 201812

REACTIONS (1)
  - Constipation [Recovered/Resolved]
